FAERS Safety Report 7245076-1 (Version None)
Quarter: 2011Q1

REPORT INFORMATION
  Report Type: 
  Country: None (occurrence: None)
  Receive Date: 20110126
  Receipt Date: 20110120
  Transmission Date: 20110831
  Serious: Yes (Hospitalization)
  Sender: FDA-Public Use
  Company Number: IE-AMGEN-IRLSP2010012492

PATIENT
  Age: 74 Year
  Sex: Male

DRUGS (6)
  1. MYCOSTATIN                         /00036501/ [Concomitant]
  2. ZOFRAN [Concomitant]
  3. MINOCIN [Concomitant]
     Indication: CHEMOTHERAPY
  4. NEULASTA [Suspect]
     Indication: CHEMOTHERAPY
     Dosage: 6 MG, 2 TIMES/WK
     Route: 058
     Dates: start: 20101223
  5. MOTILIUM                           /00498201/ [Concomitant]
  6. DEXAMETHASONE [Concomitant]

REACTIONS (3)
  - DIARRHOEA [None]
  - NEPHROLITHIASIS [None]
  - VOMITING [None]
